FAERS Safety Report 4413165-2 (Version None)
Quarter: 2004Q3

REPORT INFORMATION
  Report Type: 
  Country: None (occurrence: None)
  Receive Date: 20040802
  Receipt Date: 20040730
  Transmission Date: 20050211
  Serious: Yes (Other)
  Sender: FDA-Public Use
  Company Number: US-GLAXOSMITHKLINE-A0520403A

PATIENT
  Age: 74 Year
  Sex: Female

DRUGS (4)
  1. AVANDIA [Suspect]
     Indication: DIABETES MELLITUS NON-INSULIN-DEPENDENT
     Dosage: 4MG PER DAY
     Route: 048
     Dates: start: 20040601, end: 20040723
  2. HYDROCHLOROTHIAZIDE [Concomitant]
  3. THYROID TAB [Concomitant]
  4. MULTI-VITAMIN [Concomitant]

REACTIONS (3)
  - CONSTIPATION [None]
  - DEAFNESS [None]
  - WEIGHT INCREASED [None]
